FAERS Safety Report 20951419 (Version 1)
Quarter: 2022Q2

REPORT INFORMATION
  Report Type: Spontaneous
  Country: US (occurrence: None)
  Receive Date: 20220613
  Receipt Date: 20220613
  Transmission Date: 20220721
  Serious: Yes (Other)
  Sender: FDA-Public Use
  Company Number: None

PATIENT
  Age: 38 Year
  Sex: Female
  Weight: 80.74 kg

DRUGS (1)
  1. BUPRENORPHINE AND NALOXONE (BUPRENORPHINE\NALOXONE) [Suspect]
     Active Substance: BUPRENORPHINE\NALOXONE
     Dosage: FREQUENCY : TWICE A DAY;?
     Route: 048
     Dates: start: 20220225, end: 20220304

REACTIONS (3)
  - Mental status changes [None]
  - Drug intolerance [None]
  - Disease recurrence [None]

NARRATIVE: CASE EVENT DATE: 20220225
